FAERS Safety Report 23265212 (Version 1)
Quarter: 2023Q4

REPORT INFORMATION
  Report Type: Spontaneous
  Country: US (occurrence: US)
  Receive Date: 20231206
  Receipt Date: 20231206
  Transmission Date: 20240109
  Serious: Yes (Death, Other)
  Sender: FDA-Public Use
  Company Number: US-CELLTRION INC.-2023US018859

PATIENT

DRUGS (5)
  1. RITUXIMAB [Suspect]
     Active Substance: RITUXIMAB
     Indication: Hairy cell leukaemia
     Dosage: 8 WEEKLY DOSES
     Dates: start: 2021
  2. CLADRIBINE [Suspect]
     Active Substance: CLADRIBINE
     Indication: Hairy cell leukaemia
     Dosage: 2-YEAR REMISSION
     Dates: start: 2021
  3. COVID-19 VACCINE NOS [Suspect]
     Active Substance: COVID-19 VACCINE NOS
     Indication: COVID-19 immunisation
     Dosage: 3 DOSES
     Dates: start: 2021, end: 202110
  4. MOXETUMOMAB PASUDOTOX [Suspect]
     Active Substance: MOXETUMOMAB PASUDOTOX
     Indication: Hairy cell leukaemia
     Dosage: 4 CYCLES
     Dates: start: 2021
  5. VEMURAFENIB [Concomitant]
     Active Substance: VEMURAFENIB
     Indication: Cytopenia

REACTIONS (2)
  - COVID-19 pneumonia [Fatal]
  - Intentional product use issue [Unknown]

NARRATIVE: CASE EVENT DATE: 20220201
